FAERS Safety Report 4687252-8 (Version None)
Quarter: 2005Q2

REPORT INFORMATION
  Report Type: 
  Country: None (occurrence: None)
  Receive Date: 20050608
  Receipt Date: 20050526
  Transmission Date: 20051028
  Serious: Yes (Other)
  Sender: FDA-Public Use
  Company Number: US015295

PATIENT
  Age: 44 Year
  Sex: Female

DRUGS (6)
  1. GABITRIL [Suspect]
     Indication: NEUROPATHIC PAIN
     Dosage: 4 MG QHS ORAL
     Route: 048
     Dates: start: 20041026, end: 20040101
  2. GABITRIL [Suspect]
     Indication: SLEEP DISORDER
     Dosage: 4 MG QHS ORAL
     Route: 048
     Dates: start: 20041026, end: 20040101
  3. GABITRIL [Suspect]
     Indication: NEUROPATHIC PAIN
     Dosage: 12 MG QHS ORAL
     Route: 048
     Dates: end: 20050204
  4. GABITRIL [Suspect]
     Indication: SLEEP DISORDER
     Dosage: 12 MG QHS ORAL
     Route: 048
     Dates: end: 20050204
  5. DURAGESIC-100 [Concomitant]
  6. VICODIN [Concomitant]

REACTIONS (3)
  - CONDITION AGGRAVATED [None]
  - CONFUSIONAL STATE [None]
  - CONVULSION [None]
